FAERS Safety Report 25997127 (Version 2)
Quarter: 2025Q4

REPORT INFORMATION
  Report Type: Spontaneous
  Country: NZ (occurrence: NZ)
  Receive Date: 20251104
  Receipt Date: 20251104
  Transmission Date: 20260117
  Serious: Yes (Other)
  Sender: SANDOZ
  Company Number: NZ-SANDOZ-SDZ2025NZ081817

PATIENT

DRUGS (1)
  1. ESTRADIOL [Suspect]
     Active Substance: ESTRADIOL
     Indication: Product used for unknown indication
     Dosage: 50 MCG/24HOURS
     Route: 062

REACTIONS (4)
  - Menopausal symptoms [Unknown]
  - Symptom recurrence [Unknown]
  - Depression [Unknown]
  - Arthralgia [Unknown]
